FAERS Safety Report 11968719 (Version 1)
Quarter: 2016Q1

REPORT INFORMATION
  Report Type: Spontaneous
  Country: US (occurrence: US)
  Receive Date: 20160128
  Receipt Date: 20160128
  Transmission Date: 20160526
  Serious: Yes (Hospitalization)
  Sender: FDA-Public Use
  Company Number: US-BEH-2016058001

PATIENT
  Age: 79 Year
  Sex: Female
  Weight: 61 kg

DRUGS (23)
  1. ZANTAC [Concomitant]
     Active Substance: RANITIDINE HYDROCHLORIDE
  2. PULMOZYME [Concomitant]
     Active Substance: DORNASE ALFA
  3. POTASSIUM CHLORIDE. [Concomitant]
     Active Substance: POTASSIUM CHLORIDE
  4. COLACE [Concomitant]
     Active Substance: DOCUSATE SODIUM
  5. EPIPEN [Concomitant]
     Active Substance: EPINEPHRINE
  6. ALLEGRA [Concomitant]
     Active Substance: FEXOFENADINE HYDROCHLORIDE
  7. HIZENTRA [Suspect]
     Active Substance: HUMAN IMMUNOGLOBULIN G
     Indication: IMMUNODEFICIENCY COMMON VARIABLE
     Route: 058
  8. ALBUTEROL. [Concomitant]
     Active Substance: ALBUTEROL
  9. FLONASE [Concomitant]
     Active Substance: FLUTICASONE PROPIONATE
  10. PREDNISONE. [Concomitant]
     Active Substance: PREDNISONE
  11. XANAX [Concomitant]
     Active Substance: ALPRAZOLAM
  12. COMBIVENT [Concomitant]
     Active Substance: ALBUTEROL SULFATE\IPRATROPIUM BROMIDE
  13. ADVAIR HFA [Concomitant]
     Active Substance: FLUTICASONE PROPIONATE\SALMETEROL XINAFOATE
  14. ZOCOR [Concomitant]
     Active Substance: SIMVASTATIN
  15. LASIX [Concomitant]
     Active Substance: FUROSEMIDE
  16. PROPRANOLOL [Concomitant]
     Active Substance: PROPRANOLOL\PROPRANOLOL HYDROCHLORIDE
  17. COUMADIN [Concomitant]
     Active Substance: WARFARIN SODIUM
  18. THEOPHYLLINE [Concomitant]
     Active Substance: THEOPHYLLINE ANHYDROUS
  19. DIPHENHYDRAMINE. [Concomitant]
     Active Substance: DIPHENHYDRAMINE
  20. SINGULAIR [Concomitant]
     Active Substance: MONTELUKAST SODIUM
  21. CALCIUM + D [Concomitant]
     Active Substance: CALCIUM\VITAMIN D
  22. NEXIUM [Concomitant]
     Active Substance: ESOMEPRAZOLE MAGNESIUM
  23. OCUVITE [Concomitant]
     Active Substance: VITAMINS

REACTIONS (1)
  - Chronic obstructive pulmonary disease [Recovered/Resolved]

NARRATIVE: CASE EVENT DATE: 20151230
